FAERS Safety Report 14083408 (Version 1)
Quarter: 2017Q4

REPORT INFORMATION
  Report Type: Report from Study
  Country: US (occurrence: US)
  Receive Date: 20171013
  Receipt Date: 20171013
  Transmission Date: 20180321
  Serious: No
  Sender: FDA-Public Use
  Company Number: US-AMGEN-USASL2017082163

PATIENT
  Age: 62 Year
  Sex: Female

DRUGS (22)
  1. TOPROL XL [Concomitant]
     Active Substance: METOPROLOL SUCCINATE
  2. FISH OIL OMEGA 3 [Concomitant]
     Active Substance: FISH OIL
  3. KENALOG [Concomitant]
     Active Substance: TRIAMCINOLONE ACETONIDE
  4. XOPENEX [Concomitant]
     Active Substance: LEVALBUTEROL HYDROCHLORIDE
  5. ALLEGRA [Concomitant]
     Active Substance: FEXOFENADINE HYDROCHLORIDE
     Dosage: 180 MG, UNK
  6. SYNTHROID [Concomitant]
     Active Substance: LEVOTHYROXINE SODIUM
     Dosage: 88 MUG, UNK
  7. TORADOL [Concomitant]
     Active Substance: KETOROLAC TROMETHAMINE
  8. DITROPAN [Concomitant]
     Active Substance: OXYBUTYNIN CHLORIDE
     Dosage: 10 MG, UNK
  9. ULTRAM [Concomitant]
     Active Substance: TRAMADOL HYDROCHLORIDE
     Dosage: 50 MG, UNK
  10. ZOCOR [Concomitant]
     Active Substance: SIMVASTATIN
     Dosage: 5 MG, UNK
  11. MARCAINE [Concomitant]
     Active Substance: BUPIVACAINE HYDROCHLORIDE
  12. PREMARIN [Concomitant]
     Active Substance: ESTROGENS, CONJUGATED
     Dosage: 0.625 MG/G, UNK
  13. ASMANEX [Concomitant]
     Active Substance: MOMETASONE FUROATE
     Dosage: 220 MUG, UNK
  14. FLONASE [Concomitant]
     Active Substance: FLUTICASONE PROPIONATE
  15. CALCIUM [Concomitant]
     Active Substance: CALCIUM
  16. SINGULAIR [Concomitant]
     Active Substance: MONTELUKAST SODIUM
     Dosage: 10 MG, UNK
  17. ATIVAN [Concomitant]
     Active Substance: LORAZEPAM
     Dosage: 1 MG, UNK
  18. CELEBREX [Concomitant]
     Active Substance: CELECOXIB
     Dosage: 200 MG, UNK
  19. ROBINUL [Concomitant]
     Active Substance: GLYCOPYRROLATE
     Dosage: 1 MG, UNK
  20. PROTONIX [Concomitant]
     Active Substance: PANTOPRAZOLE SODIUM
     Dosage: 40 MG, UNK
  21. PROLIA [Suspect]
     Active Substance: DENOSUMAB
     Indication: GAIT DISTURBANCE
     Dosage: 60 MG, Q6MO
     Route: 058
     Dates: start: 20150605
  22. DEPO-MEDROL [Concomitant]
     Active Substance: METHYLPREDNISOLONE ACETATE

REACTIONS (15)
  - Iliotibial band syndrome [Unknown]
  - Uterine prolapse [Unknown]
  - Uterine polyp [Unknown]
  - Chest pain [Unknown]
  - Atrophic vulvovaginitis [Unknown]
  - Headache [Unknown]
  - Cystocele [Unknown]
  - Piriformis syndrome [Unknown]
  - Cough [Unknown]
  - Mixed incontinence [Unknown]
  - Off label use [Unknown]
  - Palpitations [Unknown]
  - Nocturia [Unknown]
  - Dyspareunia [Unknown]
  - Arthralgia [Unknown]
